FAERS Safety Report 4817699-8 (Version None)
Quarter: 2005Q3

REPORT INFORMATION
  Report Type: 
  Country: None (occurrence: None)
  Receive Date: 20050929
  Receipt Date: 20050803
  Transmission Date: 20060218
  Serious: No
  Sender: FDA-Public Use
  Company Number: 05P-163-0307415-00

PATIENT
  Age: 65 Year
  Sex: Female
  Weight: 82.5547 kg

DRUGS (9)
  1. HUMIRA [Suspect]
     Indication: RHEUMATOID ARTHRITIS
     Dosage: 40 MG, 1 IN 2 WK, SUBCUTANEOUS
     Route: 058
     Dates: start: 20040601
  2. TRIAMTERENE [Concomitant]
  3. FOLIC ACID [Concomitant]
  4. ALENDRONATE SODIUM [Concomitant]
  5. VICODIN [Concomitant]
  6. NITROFURANTOIN [Concomitant]
  7. OXYBUTYNIN [Concomitant]
  8. OMEPRAZOLE [Concomitant]
  9. METHOTREXATE [Concomitant]

REACTIONS (3)
  - HEADACHE [None]
  - PHARYNGOLARYNGEAL PAIN [None]
  - RASH [None]
